FAERS Safety Report 5616430-6 (Version None)
Quarter: 2008Q1

REPORT INFORMATION
  Report Type: 
  Country: None (occurrence: None)
  Receive Date: 20080207
  Receipt Date: 20080129
  Transmission Date: 20080703
  Serious: Yes (Other)
  Sender: FDA-Public Use
  Company Number: ES-JNJFOC-20080107113

PATIENT
  Age: 77 Year
  Sex: Male

DRUGS (4)
  1. TAVANIC [Suspect]
     Indication: RESPIRATORY TRACT INFECTION
     Route: 048
  2. NIMOTOP [Concomitant]
     Dosage: TAKEN FOR A FEW YEARS
     Route: 048
  3. CAPTOPRIL [Concomitant]
     Dosage: TAKEN FOR A FEW YEARS
     Route: 048
  4. PERMIXON [Concomitant]
     Dosage: TAKEN FOR A FEW YEARS
     Route: 048

REACTIONS (2)
  - DELIRIUM [None]
  - DISSOCIATION [None]
